FAERS Safety Report 17550778 (Version 3)
Quarter: 2020Q2

REPORT INFORMATION
  Report Type: Spontaneous
  Country: US (occurrence: US)
  Receive Date: 20200317
  Receipt Date: 20200407
  Transmission Date: 20200713
  Serious: No
  Sender: FDA-Public Use
  Company Number: US-009507513-2003USA006259

PATIENT
  Age: 29 Year
  Sex: Female
  Weight: 43.54 kg

DRUGS (2)
  1. NEXPLANON [Suspect]
     Active Substance: ETONOGESTREL
     Indication: CONTRACEPTION
     Dosage: 68 MG ROD EVERY 3 YEARS
     Route: 059
     Dates: start: 2017, end: 20200228
  2. NEXPLANON [Suspect]
     Active Substance: ETONOGESTREL
     Dosage: 68 MG ROD EVERY 3 YEARS
     Route: 059
     Dates: start: 20200228

REACTIONS (5)
  - Neuralgia [Unknown]
  - Implant site hypoaesthesia [Not Recovered/Not Resolved]
  - Implant site pain [Not Recovered/Not Resolved]
  - Medical device site discomfort [Not Recovered/Not Resolved]
  - Implant site paraesthesia [Not Recovered/Not Resolved]

NARRATIVE: CASE EVENT DATE: 20200228
